FAERS Safety Report 12932965 (Version 9)
Quarter: 2017Q1

REPORT INFORMATION
  Report Type: Report from Study
  Country: US (occurrence: US)
  Receive Date: 20161111
  Receipt Date: 20170329
  Transmission Date: 20170428
  Serious: Yes (Life-Threatening, Hospitalization, Disabling)
  Sender: FDA-Public Use
  Company Number: US-PFIZER INC-2016519411

PATIENT
  Age: 69 Year
  Sex: Female

DRUGS (2)
  1. IBRANCE [Suspect]
     Active Substance: PALBOCICLIB
     Indication: BREAST CANCER METASTATIC
     Dosage: 125 MG, DAILY
     Route: 048
     Dates: start: 20161020, end: 20161031
  2. IBRANCE [Suspect]
     Active Substance: PALBOCICLIB
     Dosage: 125 MG, DAILY
     Route: 048
     Dates: start: 20161102

REACTIONS (19)
  - Constipation [Unknown]
  - Vomiting [Unknown]
  - Retching [Unknown]
  - Feeling hot [Unknown]
  - Neck pain [Unknown]
  - Pathological fracture [Recovered/Resolved with Sequelae]
  - Pain in extremity [Unknown]
  - Musculoskeletal pain [Unknown]
  - Nausea [Unknown]
  - White blood cell count decreased [Not Recovered/Not Resolved]
  - Urine odour abnormal [Unknown]
  - Decreased appetite [Unknown]
  - Arthralgia [Not Recovered/Not Resolved]
  - Dysphagia [Unknown]
  - Drug dose omission [Recovered/Resolved]
  - Chromaturia [Unknown]
  - Hypoaesthesia [Not Recovered/Not Resolved]
  - Dry skin [Unknown]
  - Fatigue [Unknown]

NARRATIVE: CASE EVENT DATE: 201612
